FAERS Safety Report 23943547 (Version 2)
Quarter: 2024Q3

REPORT INFORMATION
  Report Type: Report from Study
  Country: JP (occurrence: JP)
  Receive Date: 20240606
  Receipt Date: 20240724
  Transmission Date: 20241017
  Serious: No
  Sender: GLAXOSMITHKLINE
  Company Number: JP-GSK-JP2024JPN065917

PATIENT

DRUGS (11)
  1. SOTROVIMAB [Suspect]
     Active Substance: SOTROVIMAB
     Indication: COVID-19
     Dosage: 500 MG
     Route: 041
     Dates: start: 20220119, end: 20220119
  2. SOTROVIMAB [Suspect]
     Active Substance: SOTROVIMAB
     Indication: Hyperthermia
  3. HEPARIN CALCIUM [Suspect]
     Active Substance: HEPARIN CALCIUM
     Indication: COVID-19
     Dosage: 10000 IU, QD
     Route: 058
     Dates: start: 20220120, end: 20220124
  4. HEPARIN CALCIUM [Suspect]
     Active Substance: HEPARIN CALCIUM
     Indication: Platelet count decreased
  5. HEPARIN CALCIUM [Suspect]
     Active Substance: HEPARIN CALCIUM
     Indication: Thrombosis prophylaxis
  6. MAGNESIUM OXIDE [Suspect]
     Active Substance: MAGNESIUM OXIDE
     Indication: Constipation
     Dosage: 1980 MG
     Route: 048
     Dates: start: 20211028, end: 20220414
  7. RITODRINE [Suspect]
     Active Substance: RITODRINE
     Indication: Premature labour
     Dosage: 5 TO 10 MG, PRN
     Dates: start: 20211229, end: 20220324
  8. SODIUM PICOSULFATE [Suspect]
     Active Substance: SODIUM PICOSULFATE
     Indication: Constipation
     Dosage: 10 DF
     Dates: start: 20200107
  9. HERBALS [Suspect]
     Active Substance: HERBALS
     Indication: Premature labour
     Dosage: 6 G
     Dates: start: 20220114, end: 20220311
  10. CALONAL [Suspect]
     Active Substance: ACETAMINOPHEN
     Indication: Pyrexia
     Dosage: 800 MG
     Dates: start: 20220118, end: 20220119
  11. DEXTROMETHORPHAN HYDROBROMIDE [Suspect]
     Active Substance: DEXTROMETHORPHAN HYDROBROMIDE
     Indication: Cough
     Dosage: 45 MG, QD
     Dates: start: 20220201, end: 20220214

REACTIONS (2)
  - Exposure during pregnancy [Unknown]
  - Live birth [Unknown]
